FAERS Safety Report 7621338-0 (Version None)
Quarter: 2011Q3

REPORT INFORMATION
  Report Type: 
  Country: None (occurrence: None)
  Receive Date: 20110719
  Receipt Date: 20110711
  Transmission Date: 20111222
  Serious: Yes (Other)
  Sender: FDA-Public Use
  Company Number: US-BAYER-2011-032884

PATIENT
  Age: 28 Year
  Sex: Female
  Weight: 113.38 kg

DRUGS (6)
  1. YASMIN [Suspect]
     Indication: CONTRACEPTION
     Dosage: UNK
     Dates: start: 20031228, end: 20080410
  2. YAZ [Suspect]
     Indication: CONTRACEPTION
     Dosage: UNK
     Dates: start: 20031228, end: 20080410
  3. METOPROLOL TARTRATE [Concomitant]
     Indication: BLOOD PRESSURE ABNORMAL
     Dosage: 25 MG, UNK
     Dates: start: 20080101
  4. TOPROL-XL [Concomitant]
     Dosage: 25 MG, UNK
  5. ALBUTEROL [Concomitant]
     Dosage: 2 PUFF Q4H PRN
     Dates: start: 20080623
  6. MOTRIN [Concomitant]
     Dosage: UNK UNK, PRN

REACTIONS (4)
  - INJURY [None]
  - PAIN [None]
  - DEEP VEIN THROMBOSIS [None]
  - THROMBOSIS [None]
